FAERS Safety Report 19367042 (Version 4)
Quarter: 2021Q3

REPORT INFORMATION
  Report Type: Report from Study
  Country: None (occurrence: US)
  Receive Date: 20210602
  Receipt Date: 20210930
  Transmission Date: 20211014
  Serious: Yes (Other)
  Sender: FDA-Public Use
  Company Number: US-ABBVIE-21K-163-3928794-00

PATIENT
  Age: 65 Year
  Sex: Female

DRUGS (5)
  1. MODERNA COVID?19 VACCINE [Suspect]
     Active Substance: CX-024414
     Dosage: MODERNA
     Route: 030
     Dates: start: 202108, end: 202108
  2. HUMIRA [Suspect]
     Active Substance: ADALIMUMAB
     Indication: CROHN^S DISEASE
     Route: 058
  3. MODERNA COVID?19 VACCINE [Suspect]
     Active Substance: CX-024414
     Dosage: MODERNA
     Route: 030
     Dates: start: 20210212, end: 20210212
  4. HUMIRA [Suspect]
     Active Substance: ADALIMUMAB
     Route: 058
  5. MODERNA COVID?19 VACCINE [Suspect]
     Active Substance: CX-024414
     Indication: COVID-19 IMMUNISATION
     Dosage: MODERNA
     Route: 030
     Dates: start: 20210114, end: 20210114

REACTIONS (5)
  - Bronchitis [Recovering/Resolving]
  - Hysterectomy [Recovered/Resolved]
  - Pyrexia [Recovered/Resolved]
  - Pain [Recovered/Resolved]
  - Fatigue [Recovered/Resolved]

NARRATIVE: CASE EVENT DATE: 202103
